FAERS Safety Report 7443735-9 (Version None)
Quarter: 2011Q2

REPORT INFORMATION
  Report Type: 
  Country: None (occurrence: None)
  Receive Date: 20110428
  Receipt Date: 20100708
  Transmission Date: 20111010
  Serious: No
  Sender: FDA-Public Use
  Company Number: US-BAUSCH-2010BL003694

PATIENT
  Age: 39 Year
  Sex: Female

DRUGS (2)
  1. VISINE EYE DROPS [Concomitant]
     Indication: OCULAR HYPERAEMIA
     Route: 047
  2. ALREX [Suspect]
     Indication: OCULAR HYPERAEMIA
     Route: 047
     Dates: start: 20100608, end: 20100613

REACTIONS (1)
  - DRUG INEFFECTIVE [None]
